FAERS Safety Report 4797330-0 (Version None)
Quarter: 2005Q4

REPORT INFORMATION
  Report Type: 
  Country: None (occurrence: None)
  Receive Date: 20051011
  Receipt Date: 20051011
  Transmission Date: 20060501
  Serious: No
  Sender: FDA-Public Use
  Company Number: None

PATIENT
  Age: 58 Year
  Sex: Female

DRUGS (1)
  1. NEFAZODONE HCL [Suspect]
     Dosage: 1 HS
     Dates: start: 20050820

REACTIONS (1)
  - ANXIETY [None]
